FAERS Safety Report 5074094-7 (Version None)
Quarter: 2006Q3

REPORT INFORMATION
  Report Type: 
  Country: None (occurrence: None)
  Receive Date: 20060808
  Receipt Date: 20051130
  Transmission Date: 20061208
  Serious: Yes (Hospitalization, Disabling)
  Sender: FDA-Public Use
  Company Number: US-SANOFI-SYNTHELABO-A03200503939

PATIENT
  Sex: Male
  Weight: 78 kg

DRUGS (5)
  1. UROXATRAL [Suspect]
     Indication: BENIGN PROSTATIC HYPERPLASIA
     Route: 048
     Dates: start: 20051108, end: 20051109
  2. UROXATRAL [Suspect]
     Indication: NOCTURIA
     Route: 048
     Dates: start: 20051108, end: 20051109
  3. LEVITRA [Concomitant]
     Route: 048
     Dates: start: 20051020, end: 20051021
  4. ASCORBIC ACID [Concomitant]
  5. MAGNESIUM [Concomitant]

REACTIONS (10)
  - APATHY [None]
  - BALANCE DISORDER [None]
  - CELLULITIS [None]
  - CEREBRAL INFARCTION [None]
  - COGNITIVE DISORDER [None]
  - CONFUSIONAL STATE [None]
  - DYSPHASIA [None]
  - INFLUENZA LIKE ILLNESS [None]
  - PHLEBITIS SUPERFICIAL [None]
  - SEPTIC PHLEBITIS [None]
